FAERS Safety Report 8829223 (Version 1)
Quarter: 2012Q4

REPORT INFORMATION
  Report Type: 
  Country: PL (occurrence: PL)
  Receive Date: 20121008
  Receipt Date: 20121008
  Transmission Date: 20130627
  Serious: Yes (Hospitalization)
  Sender: FDA-Public Use
  Company Number: PHHY2012PL085151

PATIENT
  Age: 1 Year
  Sex: Female

DRUGS (6)
  1. TACROLIMUS [Suspect]
  2. PREDNISONE [Concomitant]
     Dosage: 1 mg/kg per ady
  3. PREDNISONE [Concomitant]
     Dosage: 0.2 mg/kg per day
  4. MYCOPHENOLATE MOFETIL [Concomitant]
  5. IMMUNOGLOBULINS [Concomitant]
     Dosage: 400 mg/kg per day
  6. SIROLIMUS [Concomitant]

REACTIONS (6)
  - Thrombotic microangiopathy [Recovered/Resolved]
  - Haemolytic anaemia [Recovering/Resolving]
  - Haemolysis [Recovering/Resolving]
  - Haemochromatosis [Recovering/Resolving]
  - Platelet count decreased [Recovering/Resolving]
  - Toxicity to various agents [Recovering/Resolving]
